FAERS Safety Report 19003754 (Version 1)
Quarter: 2021Q1

REPORT INFORMATION
  Report Type: Spontaneous
  Country: NL (occurrence: NL)
  Receive Date: 20210312
  Receipt Date: 20210312
  Transmission Date: 20210420
  Serious: Yes (Life-Threatening, Hospitalization)
  Sender: FDA-Public Use
  Company Number: NL-TEVA-2021-NL-1887849

PATIENT
  Age: 76 Year
  Sex: Male
  Weight: 69 kg

DRUGS (15)
  1. ACENOCOUMAROL TABLET 1MG / BRAND NAME NOT SPECIFIED [Concomitant]
     Active Substance: ACENOCOUMAROL
     Dosage: THERAPY START DATE; THERAPY END DATE : ASKED BUT UNKNOWN
  2. MACROGOL/ZOUTEN PDR V DRANK (MOVIC/MOLAX/LAXT/GEN) / MOVICOLON POEDER [Concomitant]
     Dosage: THERAPY START DATE; THERAPY END DATE : ASKED BUT UNKNOWN
  3. SIMVASTATINE TABLET FO 20MG / BRAND NAME NOT SPECIFIED [Concomitant]
     Active Substance: SIMVASTATIN
     Dosage: THERAPY START DATE; THERAPY END DATE : ASKED BUT UNKNOWN
  4. BRINZOLAMIDE OOGDRUPPELS 10MG/ML / BRAND NAME NOT SPECIFIED [Concomitant]
     Dosage: THERAPY START DATE; THERAPY END DATE : ASKED BUT UNKNOWN
  5. MIRTAZAPINE TABLET 15MG / BRAND NAME NOT SPECIFIED [Suspect]
     Active Substance: MIRTAZAPINE
     Indication: DEPRESSION
     Dosage: 7.5 MILLIGRAM DAILY; 1X PER DAY 0.5 PIECE.,
     Dates: start: 20210108, end: 20210123
  6. PERINDOPRIL TABLET 2MG (ERBUMINE) / BRAND NAME NOT SPECIFIED [Concomitant]
     Dosage: THERAPY START DATE; THERAPY END DATE : ASKED BUT UNKNOWN
  7. SPIRONOLACTON TABLET 25MG / BRAND NAME NOT SPECIFIED [Concomitant]
     Dosage: THERAPY START DATE; THERAPY END DATE : ASKED BUT UNKNOWN
  8. PANTOPRAZOL TABLET MSR 40MG / BRAND NAME NOT SPECIFIED [Concomitant]
     Active Substance: PANTOPRAZOLE
     Dosage: THERAPY START DATE; THERAPY END DATE : ASKED BUT UNKNOWN
  9. METOPROLOL TABLET MGA  25MG (SUCCINAAT) / BRAND NAME NOT SPECIFIED [Concomitant]
     Active Substance: METOPROLOL SUCCINATE
     Dosage: THERAPY START DATE; THERAPY END DATE : ASKED BUT UNKNOWN
  10. TAMSULOSINE TABLET MGA 0,4MG / BRAND NAME NOT SPECIFIED [Concomitant]
     Active Substance: TAMSULOSIN HYDROCHLORIDE
     Dosage: THERAPY START DATE; THERAPY END DATE : ASKED BUT UNKNOWN
  11. HYALURON/CARBOM OOGDR 0,15/0,15MG/ML (CARB 981) / BRAND NAME NOT SPECI [Concomitant]
     Dosage: THERAPY START DATE; THERAPY END DATE : ASKED BUT UNKNOWN
  12. TIMOLOL/DORZOLAMIDE OOGDRUPPELS 5/20MG/ML / BRAND NAME NOT SPECIFIED [Concomitant]
     Dosage: THERAPY START DATE; THERAPY END DATE : ASKED BUT UNKNOWN
  13. DAVITAMON [Concomitant]
     Active Substance: VITAMIN A PALMITATE
     Dosage: THERAPY START DATE; THERAPY END DATE : ASKED BUT UNKNOWN
  14. PARACETAMOL / BRAND NAME NOT SPECIFIED [Concomitant]
     Dosage: THERAPY START DATE; THERAPY END DATE : ASKED BUT UNKNOWN
  15. FUROSEMIDE TABLET 40MG / BRAND NAME NOT SPECIFIED [Concomitant]
     Dosage: THERAPY START DATE; THERAPY END DATE : ASKED BUT UNKNOWN

REACTIONS (2)
  - Pancytopenia [Recovering/Resolving]
  - Aplastic anaemia [Recovering/Resolving]

NARRATIVE: CASE EVENT DATE: 20210123
